FAERS Safety Report 12108400 (Version 1)
Quarter: 2016Q1

REPORT INFORMATION
  Report Type: Spontaneous
  Country: US (occurrence: US)
  Receive Date: 20160224
  Receipt Date: 20160224
  Transmission Date: 20160526
  Serious: Yes (Other)
  Sender: FDA-Public Use
  Company Number: US-BEH-2016058917

PATIENT
  Sex: Female
  Weight: 62 kg

DRUGS (14)
  1. HIZENTRA [Suspect]
     Active Substance: HUMAN IMMUNOGLOBULIN G
  2. HIZENTRA [Suspect]
     Active Substance: HUMAN IMMUNOGLOBULIN G
     Indication: IMMUNODEFICIENCY COMMON VARIABLE
  3. ARMOUR THYROID [Concomitant]
     Active Substance: THYROID, PORCINE
  4. XANAX [Concomitant]
     Active Substance: ALPRAZOLAM
  5. EPIPEN [Concomitant]
     Active Substance: EPINEPHRINE
  6. DHEA [Concomitant]
     Active Substance: PRASTERONE
  7. HYDROCORTISONE. [Concomitant]
     Active Substance: HYDROCORTISONE
  8. DIPHENHYDRAMINE. [Concomitant]
     Active Substance: DIPHENHYDRAMINE
  9. GENTAMICIN. [Concomitant]
     Active Substance: GENTAMICIN
  10. PROGESTERONE. [Concomitant]
     Active Substance: PROGESTERONE
  11. TESTOSTERONE. [Concomitant]
     Active Substance: TESTOSTERONE
  12. HIZENTRA [Suspect]
     Active Substance: HUMAN IMMUNOGLOBULIN G
     Route: 058
  13. ACETAMINOPHEN. [Concomitant]
     Active Substance: ACETAMINOPHEN
  14. ESTRADIOL. [Concomitant]
     Active Substance: ESTRADIOL

REACTIONS (2)
  - Sinusitis [Unknown]
  - Pseudomonas infection [Unknown]
